FAERS Safety Report 4780931-3 (Version None)
Quarter: 2005Q3

REPORT INFORMATION
  Report Type: 
  Country: None (occurrence: None)
  Receive Date: 20050927
  Receipt Date: 20050927
  Transmission Date: 20060218
  Serious: Yes (Hospitalization)
  Sender: FDA-Public Use
  Company Number: None

PATIENT
  Age: 64 Year
  Sex: Male
  Weight: 80.2867 kg

DRUGS (22)
  1. MEGACE [Suspect]
     Indication: CHEMOTHERAPY
     Dosage: 20 ML QD PO
     Route: 048
     Dates: start: 20050915, end: 20050920
  2. MEGACE [Suspect]
     Indication: WEIGHT DECREASED
     Dosage: 20 ML QD PO
     Route: 048
     Dates: start: 20050915, end: 20050920
  3. TAXOL [Concomitant]
  4. ZOFRAN [Concomitant]
  5. CARBOPLATIN [Concomitant]
  6. DEXAMETHASONE [Concomitant]
  7. GEMCITABINE [Concomitant]
  8. CIMETIDINE [Concomitant]
  9. BENADRYL [Concomitant]
  10. GCSF [Concomitant]
  11. GEMCITABINE [Concomitant]
  12. ZOFRAN [Concomitant]
  13. ARANESP [Concomitant]
  14. METOPROLOL [Concomitant]
  15. PLAVIX [Concomitant]
  16. ALTACE [Concomitant]
  17. LIPITOR [Concomitant]
  18. VIT. C [Concomitant]
  19. HYDROCODONE [Concomitant]
  20. VIT. B6 [Concomitant]
  21. KETOROLAC TROMETHAMINE [Concomitant]
  22. OXYCODONE HCL [Concomitant]

REACTIONS (2)
  - CATHETER RELATED INFECTION [None]
  - STAPHYLOCOCCAL SEPSIS [None]
